FAERS Safety Report 7844539-5 (Version None)
Quarter: 2011Q4

REPORT INFORMATION
  Report Type: 
  Country: None (occurrence: None)
  Receive Date: 20111025
  Receipt Date: 20111018
  Transmission Date: 20120403
  Serious: Yes (Death)
  Sender: FDA-Public Use
  Company Number: JP-JNJFOC-20111009637

PATIENT

DRUGS (1)
  1. FENTANYL-100 [Suspect]
     Indication: PAIN
     Route: 062

REACTIONS (1)
  - DEATH [None]
